FAERS Safety Report 16096210 (Version 1)
Quarter: 2019Q1

REPORT INFORMATION
  Report Type: Spontaneous
  Country: US (occurrence: US)
  Receive Date: 20190320
  Receipt Date: 20190320
  Transmission Date: 20190418
  Serious: No
  Sender: FDA-Public Use
  Company Number: US-ALLERGAN-1859689US

PATIENT
  Age: 40 Year
  Sex: Female

DRUGS (1)
  1. ACZONE [Suspect]
     Active Substance: DAPSONE
     Indication: ACNE
     Dosage: DAILY TO EFFECTED AREA
     Route: 061
     Dates: start: 201812

REACTIONS (2)
  - Product physical consistency issue [Unknown]
  - Application site pain [Unknown]
